FAERS Safety Report 9348172 (Version 1)
Quarter: 2013Q2

REPORT INFORMATION
  Report Type: Spontaneous
  Country: US (occurrence: None)
  Receive Date: 20130612
  Receipt Date: 20130612
  Transmission Date: 20140414
  Serious: Yes (Other)
  Sender: FDA-Public Use
  Company Number: None

PATIENT
  Age: 70 Year
  Sex: Female

DRUGS (9)
  1. GLEEVEC [Suspect]
     Route: 048
     Dates: start: 20130612
  2. FLOVENT [Concomitant]
  3. PROAIR [Concomitant]
  4. FLUTICASONE NASAL SPRAY [Concomitant]
  5. ASPIRIN [Concomitant]
  6. AMLODIPINE [Concomitant]
  7. SINGULAIR [Concomitant]
  8. OMEPRAZOLE [Concomitant]
  9. OSCAL [Suspect]

REACTIONS (1)
  - Haemoglobin decreased [None]
